FAERS Safety Report 9802395 (Version 1)
Quarter: 2014Q1

REPORT INFORMATION
  Report Type: Spontaneous
  Country: US (occurrence: US)
  Receive Date: 20140107
  Receipt Date: 20140107
  Transmission Date: 20141002
  Serious: No
  Sender: FDA-Public Use
  Company Number: US-009507513-1312USA012668

PATIENT
  Sex: Female
  Weight: 64.4 kg

DRUGS (6)
  1. ZOCOR [Suspect]
     Dosage: UNK
     Route: 048
     Dates: start: 1997
  2. ZOCOR [Suspect]
     Dosage: UNK
     Route: 048
     Dates: start: 2011, end: 2011
  3. PLAVIX [Concomitant]
  4. SYNTHROID [Concomitant]
  5. CLONIDINE [Concomitant]
  6. ZOLPIDEM TARTRATE [Concomitant]

REACTIONS (4)
  - Muscle atrophy [Unknown]
  - Muscular weakness [Unknown]
  - Myalgia [Unknown]
  - Neuropathy peripheral [Recovered/Resolved]
